FAERS Safety Report 6658057-3 (Version None)
Quarter: 2010Q1

REPORT INFORMATION
  Report Type: 
  Country: None (occurrence: None)
  Receive Date: 20100330
  Receipt Date: 20100323
  Transmission Date: 20100710
  Serious: Yes (Hospitalization, Disabling)
  Sender: FDA-Public Use
  Company Number: US-MERCK-1003USA03806

PATIENT
  Age: 69 Year
  Sex: Male

DRUGS (19)
  1. ZOCOR [Suspect]
     Indication: BLOOD CHOLESTEROL
     Route: 048
     Dates: start: 19800101
  2. ZOCOR [Suspect]
     Route: 048
  3. HUMIRA [Concomitant]
     Route: 065
  4. PREDNISONE [Concomitant]
     Route: 065
  5. LISINOPRIL [Concomitant]
     Route: 065
  6. AMLODIPINE [Concomitant]
     Route: 065
  7. METOPROLOL [Concomitant]
     Route: 065
  8. DIETHYLSTILBESTROL [Concomitant]
     Route: 065
  9. OMEPRAZOLE [Concomitant]
     Route: 065
  10. WELLBUTRIN [Concomitant]
     Route: 065
  11. METHADONE HYDROCHLORIDE [Concomitant]
     Route: 065
  12. LIDOCAINE AND PRILOCAINE [Concomitant]
     Route: 065
  13. AMBIEN [Concomitant]
     Route: 065
  14. DETROL [Concomitant]
     Route: 065
  15. DIAZEPAM [Concomitant]
     Route: 065
  16. METHOTREXATE [Concomitant]
     Route: 065
  17. FOLIC ACID [Concomitant]
     Route: 065
  18. CALCIUM (UNSPECIFIED) AND VITAMIN D (UNSPECIFIED) [Concomitant]
     Route: 065
  19. SIMVASTATIN [Suspect]
     Indication: BLOOD CHOLESTEROL
     Route: 048

REACTIONS (4)
  - FEELING ABNORMAL [None]
  - MYALGIA [None]
  - PARONYCHIA [None]
  - WRONG TECHNIQUE IN DRUG USAGE PROCESS [None]
